FAERS Safety Report 24618588 (Version 1)
Quarter: 2024Q4

REPORT INFORMATION
  Report Type: Spontaneous
  Country: IL (occurrence: IL)
  Receive Date: 20241114
  Receipt Date: 20241114
  Transmission Date: 20250114
  Serious: Yes (Other)
  Sender: PFIZER
  Company Number: IL-PFIZER INC-PV202400145078

PATIENT
  Sex: Female

DRUGS (1)
  1. DOCETAXEL [Suspect]
     Active Substance: DOCETAXEL
     Dosage: UNK
     Dates: start: 20240806

REACTIONS (6)
  - Skin reaction [Unknown]
  - Rash [Unknown]
  - Skin burning sensation [Not Recovered/Not Resolved]
  - Administration site infection [Unknown]
  - Administration site pain [Not Recovered/Not Resolved]
  - Administration site movement impairment [Not Recovered/Not Resolved]
